FAERS Safety Report 19622830 (Version 2)
Quarter: 2021Q4

REPORT INFORMATION
  Report Type: Spontaneous
  Country: GB (occurrence: GB)
  Receive Date: 20210728
  Receipt Date: 20211202
  Transmission Date: 20220304
  Serious: Yes (Life-Threatening, Hospitalization, Other)
  Sender: FDA-Public Use
  Company Number: GB-VERTEX PHARMACEUTICALS-2021-011098

PATIENT
  Sex: Male

DRUGS (9)
  1. ELEXACAFTOR\IVACAFTOR\TEZACAFTOR [Suspect]
     Active Substance: ELEXACAFTOR\IVACAFTOR\TEZACAFTOR
     Indication: Cystic fibrosis
     Dosage: 2 TABLETS (75 MG IVA/ 50 MG TEZA/100 MG ELEXA) AM
     Route: 048
     Dates: start: 202009
  2. KALYDECO [Suspect]
     Active Substance: IVACAFTOR
     Indication: Cystic fibrosis
     Dosage: (150 MILLIGRAM) IN EVENING
     Route: 048
     Dates: start: 202009
  3. COLISTIN SULFATE [Concomitant]
     Active Substance: COLISTIN SULFATE
  4. STREPTODORNASE\STREPTOKINASE [Concomitant]
     Active Substance: STREPTODORNASE\STREPTOKINASE
  5. HYDROCORTISONE [Concomitant]
     Active Substance: HYDROCORTISONE
  6. PAROXETINE [Concomitant]
     Active Substance: PAROXETINE
  7. LORATADINE [Concomitant]
     Active Substance: LORATADINE
  8. SPIRONOLACTONE [Concomitant]
     Active Substance: SPIRONOLACTONE
  9. PRELONE [Concomitant]
     Active Substance: PREDNISOLONE

REACTIONS (3)
  - Hepatic cirrhosis [Unknown]
  - Haemorrhage [Unknown]
  - Liver disorder [Unknown]
